FAERS Safety Report 25533695 (Version 1)
Quarter: 2025Q3

REPORT INFORMATION
  Report Type: Spontaneous
  Country: GB (occurrence: GB)
  Receive Date: 20250709
  Receipt Date: 20250709
  Transmission Date: 20251021
  Serious: Yes (Other)
  Sender: AUROBINDO
  Company Number: GB-MHRA-35969355

PATIENT

DRUGS (1)
  1. CIPROFLOXACIN [Suspect]
     Active Substance: CIPROFLOXACIN
     Indication: Sinusitis
     Route: 065
     Dates: start: 202502

REACTIONS (5)
  - Muscle atrophy [Unknown]
  - Neuralgia [Unknown]
  - Paraesthesia [Unknown]
  - Pain in extremity [Unknown]
  - Fatigue [Unknown]
